FAERS Safety Report 24839652 (Version 1)
Quarter: 2025Q1

REPORT INFORMATION
  Report Type: Spontaneous
  Country: KR (occurrence: KR)
  Receive Date: 20250114
  Receipt Date: 20250114
  Transmission Date: 20250409
  Serious: Yes (Death, Other)
  Sender: GILEAD
  Company Number: KR-GILEAD-2025-0699671

PATIENT
  Age: 85 Year
  Sex: Male

DRUGS (1)
  1. VEKLURY [Suspect]
     Active Substance: REMDESIVIR
     Indication: COVID-19
     Route: 065

REACTIONS (5)
  - Respiratory arrest [Fatal]
  - Cardiac arrest [Fatal]
  - Multiple organ dysfunction syndrome [Fatal]
  - Peripheral swelling [Not Recovered/Not Resolved]
  - Gait disturbance [Not Recovered/Not Resolved]
